FAERS Safety Report 4586113-2 (Version None)
Quarter: 2005Q1

REPORT INFORMATION
  Report Type: 
  Country: None (occurrence: None)
  Receive Date: 20050125
  Receipt Date: 20041018
  Transmission Date: 20050727
  Serious: No
  Sender: FDA-Public Use
  Company Number: USA041081325

PATIENT
  Age: 78 Year
  Sex: Male

DRUGS (2)
  1. FORTEO [Suspect]
     Indication: OSTEOPOROSIS
     Dates: start: 20040401
  2. INFLUENZA VACCINE [Concomitant]

REACTIONS (3)
  - BONE PAIN [None]
  - INFLUENZA LIKE ILLNESS [None]
  - MYALGIA [None]
